FAERS Safety Report 23863221 (Version 1)
Quarter: 2024Q2

REPORT INFORMATION
  Report Type: Spontaneous
  Country: SE (occurrence: SE)
  Receive Date: 20240516
  Receipt Date: 20240516
  Transmission Date: 20240716
  Serious: Yes (Hospitalization)
  Sender: FDA-Public Use
  Company Number: None

PATIENT
  Age: 44 Year
  Sex: Female

DRUGS (5)
  1. NAPROXEN [Suspect]
     Active Substance: NAPROXEN
     Indication: Ankylosing spondylitis
     Dosage: 1X2
     Route: 050
     Dates: start: 20050926, end: 20240404
  2. COSENTYX [Suspect]
     Active Substance: SECUKINUMAB
     Indication: Ankylosing spondylitis
     Dosage: I INJEKTION VAR 4:E VECKA
     Route: 050
     Dates: start: 20230920, end: 20240220
  3. CITALOPRAM JUBILANT [Concomitant]
     Indication: Product used for unknown indication
     Dosage: 1X1
     Route: 050
     Dates: start: 20210909
  4. TRAMADOL HYDROCHLORIDE [Concomitant]
     Active Substance: TRAMADOL HYDROCHLORIDE
     Indication: Product used for unknown indication
     Dosage: 1X2
     Route: 050
     Dates: start: 20090926
  5. PARAFLEX [Concomitant]
     Active Substance: CHLORZOXAZONE
     Indication: Product used for unknown indication
     Dosage: 1VB; AS REQUIRED
     Route: 050
     Dates: start: 20220804

REACTIONS (3)
  - Colitis [Recovered/Resolved with Sequelae]
  - Colectomy [Unknown]
  - Ileostomy [Unknown]

NARRATIVE: CASE EVENT DATE: 20240117
